FAERS Safety Report 10887555 (Version 1)
Quarter: 2015Q1

REPORT INFORMATION
  Report Type: Spontaneous
  Country: US (occurrence: US)
  Receive Date: 20150304
  Receipt Date: 20150304
  Transmission Date: 20150721
  Serious: Yes (Other)
  Sender: FDA-Public Use
  Company Number: US-AMGEN-USASP2014037917

PATIENT
  Age: 64 Year
  Sex: Female

DRUGS (2)
  1. ENBREL [Suspect]
     Active Substance: ETANERCEPT
     Indication: RHEUMATOID ARTHRITIS
     Dosage: 50 MG, UNK
     Route: 065
     Dates: start: 2010
  2. SULFAMETHOXAZOLE [Suspect]
     Active Substance: SULFAMETHOXAZOLE
     Indication: INFECTED BITES
     Dosage: UNK
     Route: 065

REACTIONS (10)
  - Pain in extremity [Unknown]
  - Rash [Unknown]
  - Arthralgia [Unknown]
  - Mouth swelling [Unknown]
  - Nausea [Unknown]
  - Joint swelling [Unknown]
  - Hypersensitivity [Unknown]
  - Diarrhoea [Unknown]
  - Infected bites [Unknown]
  - Peripheral swelling [Unknown]

NARRATIVE: CASE EVENT DATE: 20140423
